FAERS Safety Report 10666790 (Version 1)
Quarter: 2014Q4

REPORT INFORMATION
  Report Type: Spontaneous
  Country: US (occurrence: None)
  Receive Date: 20141219
  Receipt Date: 20141219
  Transmission Date: 20150529
  Serious: Yes (Disabling, Other)
  Sender: FDA-Public Use
  Company Number: None

PATIENT
  Age: 57 Year
  Sex: Female
  Weight: 60.78 kg

DRUGS (3)
  1. SPIRIVA [Concomitant]
     Active Substance: TIOTROPIUM BROMIDE MONOHYDRATE
  2. AVELOX [Suspect]
     Active Substance: MOXIFLOXACIN HYDROCHLORIDE
     Indication: UPPER RESPIRATORY TRACT INFECTION
     Dosage: 1 PILL PER DAY BY MOUTH
     Route: 048
     Dates: start: 20141213, end: 20141215
  3. QVAR [Concomitant]
     Active Substance: BECLOMETHASONE DIPROPIONATE

REACTIONS (6)
  - Connective tissue disorder [None]
  - Local swelling [None]
  - Gait disturbance [None]
  - Tenderness [None]
  - Feeling hot [None]
  - Weight bearing difficulty [None]

NARRATIVE: CASE EVENT DATE: 20141214
